FAERS Safety Report 8001416-7 (Version None)
Quarter: 2011Q4

REPORT INFORMATION
  Report Type: 
  Country: None (occurrence: None)
  Receive Date: 20111222
  Receipt Date: 20111213
  Transmission Date: 20120403
  Serious: Yes (Life-Threatening, Hospitalization)
  Sender: FDA-Public Use
  Company Number: IL-MILLENNIUM PHARMACEUTICALS, INC.-2011-05891

PATIENT

DRUGS (9)
  1. AREDIA [Concomitant]
     Dosage: UNK
     Dates: start: 20111109
  2. CYCLOPHOSPHAMIDE [Suspect]
     Indication: PRODUCT USED FOR UNKNOWN INDICATION
     Dosage: UNK
     Dates: start: 20111110
  3. DIFLUCAN [Concomitant]
     Dosage: UNK
     Dates: start: 20111111, end: 20111123
  4. ROCEPHIN [Concomitant]
     Dosage: UNK
     Dates: start: 20111109, end: 20111110
  5. VELCADE [Suspect]
     Indication: MULTIPLE MYELOMA
     Dosage: 2.3 UNK, UNK
     Dates: start: 20111113
  6. DEXAMETHASONE [Concomitant]
     Dosage: UNK
     Dates: start: 20111109
  7. ZINACEF [Concomitant]
     Dosage: UNK
     Dates: start: 20111115
  8. CLEXAN [Concomitant]
     Dosage: UNK
     Dates: start: 20111109
  9. ROCEPHIN [Concomitant]
     Dosage: UNK
     Dates: start: 20111110, end: 20111113

REACTIONS (1)
  - NEUTROPENIA [None]
